FAERS Safety Report 6745642-3 (Version None)
Quarter: 2010Q2

REPORT INFORMATION
  Report Type: 
  Country: None (occurrence: None)
  Receive Date: 20100528
  Receipt Date: 20100521
  Transmission Date: 20101027
  Serious: Yes (Other)
  Sender: FDA-Public Use
  Company Number: FR-ABBOTT-10P-056-0646393-00

PATIENT
  Age: 14 Year
  Sex: Male

DRUGS (3)
  1. MICROPAKINE L.P. [Suspect]
     Indication: MENTAL RETARDATION
     Route: 048
     Dates: start: 20090101
  2. MICROPAKINE L.P. [Suspect]
     Route: 048
     Dates: start: 20090207
  3. LAMICTAL [Concomitant]
     Indication: DRUG USE FOR UNKNOWN INDICATION
     Dates: start: 20020101

REACTIONS (3)
  - APATHY [None]
  - PRODUCT QUALITY ISSUE [None]
  - SOMNOLENCE [None]
